FAERS Safety Report 24440704 (Version 8)
Quarter: 2025Q2

REPORT INFORMATION
  Report Type: Report from Study
  Country: US (occurrence: US)
  Receive Date: 20241016
  Receipt Date: 20250611
  Transmission Date: 20250716
  Serious: Yes (Hospitalization)
  Sender: INSMED
  Company Number: INSM2400446

PATIENT
  Sex: Female

DRUGS (2)
  1. ARIKAYCE [Suspect]
     Active Substance: AMIKACIN
     Indication: Mycobacterium avium complex infection
     Dosage: 590 MILLIGRAM, QD
     Route: 055
     Dates: start: 202403, end: 2024
  2. ARIKAYCE [Suspect]
     Active Substance: AMIKACIN
     Dosage: 590 MILLIGRAM, QD
     Route: 055
     Dates: start: 2024

REACTIONS (11)
  - Lung transplant [Unknown]
  - Hospitalisation [Unknown]
  - Hospitalisation [Unknown]
  - Cough [Not Recovered/Not Resolved]
  - Hypoacusis [Not Recovered/Not Resolved]
  - Product use issue [Unknown]
  - Intentional dose omission [Unknown]
  - Therapy interrupted [Unknown]
  - Wrong technique in product usage process [Unknown]
  - Device use error [Unknown]
  - Drug dose omission by device [Unknown]

NARRATIVE: CASE EVENT DATE: 20240101
